FAERS Safety Report 12997539 (Version 1)
Quarter: 2016Q4

REPORT INFORMATION
  Report Type: Spontaneous
  Country: CA (occurrence: CA)
  Receive Date: 20161205
  Receipt Date: 20161205
  Transmission Date: 20170207
  Serious: Yes (Other)
  Sender: FDA-Public Use
  Company Number: CA-ROCHE-1862156

PATIENT
  Age: 45 Year
  Sex: Male

DRUGS (2)
  1. ACTEMRA [Suspect]
     Active Substance: TOCILIZUMAB
     Indication: RHEUMATOID ARTHRITIS
     Route: 065
     Dates: start: 201511, end: 201611
  2. ARAVA [Concomitant]
     Active Substance: LEFLUNOMIDE
     Dosage: PRIOR TO 2014
     Route: 065

REACTIONS (7)
  - Cardiac disorder [Unknown]
  - Infection [Unknown]
  - Joint swelling [Unknown]
  - Infection susceptibility increased [Unknown]
  - Arthralgia [Unknown]
  - Musculoskeletal pain [Unknown]
  - Pain in extremity [Unknown]

NARRATIVE: CASE EVENT DATE: 20161103
